FAERS Safety Report 8428708-1 (Version None)
Quarter: 2012Q2

REPORT INFORMATION
  Report Type: 
  Country: None (occurrence: None)
  Receive Date: 20120606
  Receipt Date: 20120524
  Transmission Date: 20120825
  Serious: Yes (Hospitalization)
  Sender: FDA-Public Use
  Company Number: GB-DEXPHARM-20120607

PATIENT
  Age: 80 Year
  Sex: Male

DRUGS (8)
  1. LEUPROELIN [Concomitant]
  2. BISOPROLOL FUMARATE [Concomitant]
  3. ATORVASTATIN CALCIUM [Concomitant]
  4. ASPIRIN [Concomitant]
  5. CITALOPRAM [Concomitant]
  6. OMEPRAZOLE [Suspect]
     Indication: GASTROINTESTINAL DISORDER
     Dosage: 10 MG MILLIGRAM(S) SEP. DOSAGES / INTERVAL: 1 IN 1 DAY, ORAL
     Route: 048
     Dates: start: 20120131, end: 20120419
  7. MIDODRINE HYDROCHLORIDE [Concomitant]
  8. ACETAMINOPHEN [Concomitant]

REACTIONS (6)
  - ELECTROLYTE IMBALANCE [None]
  - HYPOKALAEMIA [None]
  - HYPOPHOSPHATAEMIA [None]
  - DIARRHOEA [None]
  - HYPOMAGNESAEMIA [None]
  - HYPOCALCAEMIA [None]
